FAERS Safety Report 5688973-0 (Version None)
Quarter: 2008Q1

REPORT INFORMATION
  Report Type: 
  Country: None (occurrence: None)
  Receive Date: 20080331
  Receipt Date: 20070118
  Transmission Date: 20080703
  Serious: Yes (Death)
  Sender: FDA-Public Use
  Company Number: PL-ROCHE-479467

PATIENT
  Age: 55 Year
  Sex: Female
  Weight: 51 kg

DRUGS (2)
  1. XELODA [Suspect]
     Indication: RECTAL CANCER
     Route: 048
     Dates: start: 20061129, end: 20061212
  2. XELODA [Suspect]
     Route: 048
     Dates: start: 20061222, end: 20070105

REACTIONS (4)
  - ASTHENIA [None]
  - DEATH [None]
  - DIARRHOEA [None]
  - VOMITING [None]
